FAERS Safety Report 6000397-5 (Version None)
Quarter: 2008Q4

REPORT INFORMATION
  Report Type: 
  Country: None (occurrence: None)
  Receive Date: 20081211
  Receipt Date: 20081203
  Transmission Date: 20090506
  Serious: Yes (Death)
  Sender: FDA-Public Use
  Company Number: 230087J08CAN

PATIENT
  Age: 57 Year
  Sex: Female

DRUGS (2)
  1. REBIF [Suspect]
     Indication: RELAPSING-REMITTING MULTIPLE SCLEROSIS
     Dosage: 44 MCG, 3 IN 1 WEEKS;   22 MCG, 3 IN 1 WEEKS
     Dates: start: 20000926, end: 20050123
  2. REBIF [Suspect]
     Indication: RELAPSING-REMITTING MULTIPLE SCLEROSIS
     Dosage: 44 MCG, 3 IN 1 WEEKS;   22 MCG, 3 IN 1 WEEKS
     Dates: start: 20050125, end: 20080901

REACTIONS (3)
  - INFLUENZA LIKE ILLNESS [None]
  - INSOMNIA [None]
  - LUNG NEOPLASM MALIGNANT [None]
